FAERS Safety Report 5106318-1 (Version None)
Quarter: 2006Q3

REPORT INFORMATION
  Report Type: 
  Country: None (occurrence: None)
  Receive Date: 20060918
  Receipt Date: 20060905
  Transmission Date: 20061208
  Serious: Yes (Death, Hospitalization)
  Sender: FDA-Public Use
  Company Number: US-JNJFOC-20060902171

PATIENT
  Age: 33 Year
  Sex: Female

DRUGS (1)
  1. ACETAMINOPHEN/DIPHENHYDRAMINE [Suspect]
     Indication: SUICIDE ATTEMPT
     Dosage: HIGH DOSES FOR 3 DAYS
     Route: 048

REACTIONS (4)
  - BRAIN OEDEMA [None]
  - COMPLETED SUICIDE [None]
  - DRUG TOXICITY [None]
  - INTENTIONAL DRUG MISUSE [None]
